FAERS Safety Report 6291501-2 (Version None)
Quarter: 2009Q3

REPORT INFORMATION
  Report Type: 
  Country: None (occurrence: None)
  Receive Date: 20090729
  Receipt Date: 20090729
  Transmission Date: 20100115
  Serious: Yes (Other)
  Sender: FDA-Public Use
  Company Number: None

PATIENT
  Age: 7 Month
  Sex: Female
  Weight: 8.1194 kg

DRUGS (1)
  1. ALTABAX [Suspect]
     Indication: FUNGAL INFECTION
     Dosage: APPLY TO DIAPER AREA TWICE DAILY TOP, ONLY USED ONE TIME
     Route: 061

REACTIONS (3)
  - SCREAMING [None]
  - SKIN EXFOLIATION [None]
  - THERMAL BURN [None]
